FAERS Safety Report 25373864 (Version 1)
Quarter: 2025Q2

REPORT INFORMATION
  Report Type: Spontaneous
  Country: US (occurrence: US)
  Receive Date: 20250529
  Receipt Date: 20250529
  Transmission Date: 20250717
  Serious: No
  Sender: PFIZER
  Company Number: US-PFIZER INC-202500109870

PATIENT
  Age: 54 Year
  Sex: Female

DRUGS (1)
  1. XELJANZ XR [Suspect]
     Active Substance: TOFACITINIB CITRATE
     Indication: Psoriatic arthropathy
     Dosage: 11 MG, 1X/DAY (DAILY AS DIRECTED), 30 TABLETS
     Route: 048

REACTIONS (3)
  - Therapeutic product effect incomplete [Unknown]
  - Visual impairment [Unknown]
  - Chronic spontaneous urticaria [Unknown]
